FAERS Safety Report 20536475 (Version 1)
Quarter: 2022Q1

REPORT INFORMATION
  Report Type: Other
  Country: DE (occurrence: DE)
  Receive Date: 20220302
  Receipt Date: 20220302
  Transmission Date: 20220423
  Serious: Yes (Other)
  Sender: FDA-Public Use
  Company Number: DE-EMBRYOTOX-202101025

PATIENT
  Sex: Female
  Weight: 60 kg

DRUGS (9)
  1. QUETIAPINE FUMARATE [Suspect]
     Active Substance: QUETIAPINE FUMARATE
     Indication: Bipolar II disorder
     Dosage: 100 MG, QD (100 MG/D) (0. - 40.2. GESTATIONAL WEEK )
     Route: 048
     Dates: start: 20200521, end: 20210227
  2. METOCLOPRAMIDE [Suspect]
     Active Substance: METOCLOPRAMIDE
     Indication: Hyperemesis gravidarum
     Dosage: UNK (9.5. - 10.4. GESTATIONAL WEEK)
     Route: 042
     Dates: start: 20200728, end: 20200803
  3. FLUCELVAX TETRA [Suspect]
     Active Substance: INFLUENZA VIRUS VACCINE
     Indication: Immunisation
     Dosage: UNK (25. - 25. GESTATIONAL WEEK )
     Route: 030
     Dates: start: 20201112, end: 20201112
  4. BOOSTRIX [Suspect]
     Active Substance: TETANUS TOXOID, REDUCED DIPHTHERIA TOXOID AND ACELLULAR PERTUSSIS VACCINE, ADSORBED ANTIGENS
     Indication: Immunisation
     Dosage: UNK (28.5. - 28.5. GESTATIONAL WEEK)
     Route: 030
     Dates: start: 20201208, end: 20201208
  5. DIMENHYDRINATE [Suspect]
     Active Substance: DIMENHYDRINATE
     Indication: Hyperemesis gravidarum
     Dosage: UNK (9.5. - 10.4. GESTATIONAL WEEK)
     Route: 042
     Dates: start: 20200728, end: 20200803
  6. PROTAPHANE [Suspect]
     Active Substance: INSULIN HUMAN
     Indication: Gestational diabetes
     Dosage: 6 INTERNATIONAL UNIT, QD (6 [IE/D (BIS 4, (0-0-0-6) (37.1. - 40.2. GESTATIONAL WEEK )
     Route: 058
     Dates: start: 20210205, end: 20210227
  7. ACTRAPID [Suspect]
     Active Substance: INSULIN HUMAN
     Indication: Gestational diabetes
     Dosage: 18 INTERNATIONAL UNIT, QD {(18 [IE/D (BIS 2) ]) (37.1. - 40.2. GESTATIONAL WEEK)
     Route: 058
     Dates: start: 20210205, end: 20210227
  8. CITALOPRAM [Suspect]
     Active Substance: CITALOPRAM HYDROBROMIDE
     Indication: Bipolar II disorder
     Dosage: 10 MILLIGRAM, QD (0. - 40.2. GESTATIONAL WEEK )
     Route: 048
     Dates: start: 20200521, end: 20210227
  9. ZOFRAN [Suspect]
     Active Substance: ONDANSETRON HYDROCHLORIDE
     Indication: Hyperemesis gravidarum
     Dosage: UNK (9.5. - 15.3. GESTATIONAL WEEK )
     Route: 042
     Dates: start: 20200728, end: 20200906

REACTIONS (2)
  - Gestational diabetes [Recovered/Resolved]
  - Exposure during pregnancy [Unknown]
